FAERS Safety Report 17268470 (Version 2)
Quarter: 2020Q1

REPORT INFORMATION
  Report Type: Report from Study
  Country: CA (occurrence: CA)
  Receive Date: 20200114
  Receipt Date: 20200207
  Transmission Date: 20200409
  Serious: Yes (Other)
  Sender: FDA-Public Use
  Company Number: CA-JNJFOC-20200111731

PATIENT
  Sex: Male
  Weight: 72 kg

DRUGS (1)
  1. REMICADE [Suspect]
     Active Substance: INFLIXIMAB
     Indication: COLITIS ULCERATIVE
     Route: 042
     Dates: end: 20200107

REACTIONS (7)
  - Vomiting [Recovering/Resolving]
  - Flushing [Unknown]
  - Flatulence [Unknown]
  - Infusion related reaction [Unknown]
  - Abdominal distension [Unknown]
  - Feeling abnormal [Unknown]
  - Nausea [Recovering/Resolving]
